FAERS Safety Report 8577107 (Version 3)
Quarter: 2012Q4

REPORT INFORMATION
  Report Type: 
  Country: US (occurrence: US)
  Receive Date: 20120524
  Receipt Date: 20120926
  Transmission Date: 20130627
  Serious: Yes (Hospitalization, Other)
  Sender: FDA-Public Use
  Company Number: US-PFIZER INC-2012122822

PATIENT
  Age: 58 Year
  Sex: Female
  Weight: 69.84 kg

DRUGS (4)
  1. LYRICA [Suspect]
     Indication: MYALGIA
     Dosage: 225 mg, 2x/day
     Route: 048
     Dates: end: 201205
  2. LYRICA [Suspect]
     Dosage: 75 mg, 2x/day
     Route: 048
     Dates: end: 2012
  3. SYNTHROID [Concomitant]
     Dosage: UNK
  4. ZANAFLEX [Concomitant]
     Dosage: UNK

REACTIONS (5)
  - Cellulitis [Recovered/Resolved]
  - Blood potassium decreased [Unknown]
  - Complex regional pain syndrome [Recovered/Resolved]
  - Suicidal ideation [Recovered/Resolved]
  - Depression [Unknown]
